FAERS Safety Report 8879072 (Version 1)
Quarter: 2012Q4

REPORT INFORMATION
  Report Type: Spontaneous
  Country: US (occurrence: None)
  Receive Date: 20121031
  Receipt Date: 20121031
  Transmission Date: 20130627
  Serious: No
  Sender: FDA-Public Use
  Company Number: None

PATIENT
  Age: 67 Year
  Sex: Male

DRUGS (2)
  1. MORPHINE [Suspect]
     Indication: PAIN
     Route: 048
     Dates: start: 20110509, end: 20121024
  2. ACETAMINOPHEN/HYDROCODONE [Suspect]
     Dosage: MG PO
     Route: 048
     Dates: start: 20121010, end: 20121023

REACTIONS (3)
  - Mental status changes [None]
  - Fatigue [None]
  - Confusional state [None]
